FAERS Safety Report 4579718-6 (Version None)
Quarter: 2005Q1

REPORT INFORMATION
  Report Type: 
  Country: None (occurrence: None)
  Receive Date: 20050210
  Receipt Date: 20050131
  Transmission Date: 20050727
  Serious: Yes (Other)
  Sender: FDA-Public Use
  Company Number: HQWYE083603FEB05

PATIENT
  Sex: Female

DRUGS (2)
  1. DIAMOX [Suspect]
  2. NEPTAZANE [Suspect]

REACTIONS (2)
  - BLOOD DISORDER [None]
  - WHITE BLOOD CELL COUNT DECREASED [None]
